FAERS Safety Report 8367143-1 (Version None)
Quarter: 2012Q2

REPORT INFORMATION
  Report Type: 
  Country: None (occurrence: None)
  Receive Date: 20120517
  Receipt Date: 20120502
  Transmission Date: 20120825
  Serious: Yes (Other)
  Sender: FDA-Public Use
  Company Number: GB-WATSON-2012-08178

PATIENT
  Age: 18 Year
  Sex: Male
  Weight: 70 kg

DRUGS (1)
  1. CITALOPRAM HYDROBROMIDE [Suspect]
     Indication: DEPRESSION
     Dosage: 10 MG, UNKNOWN
     Route: 048
     Dates: start: 20120328, end: 20120402

REACTIONS (1)
  - TIC [None]
